FAERS Safety Report 15968990 (Version 2)
Quarter: 2019Q1

REPORT INFORMATION
  Report Type: Report from Study
  Country: CA (occurrence: CA)
  Receive Date: 20190215
  Receipt Date: 20190301
  Transmission Date: 20190418
  Serious: Yes (Death)
  Sender: FDA-Public Use
  Company Number: CA-HLSUS-2019-CA-000108

PATIENT
  Sex: Female

DRUGS (1)
  1. CLOZARIL [Suspect]
     Active Substance: CLOZAPINE
     Dosage: 100 MG ONCE DAILY
     Route: 048
     Dates: end: 201211

REACTIONS (2)
  - Breast cancer metastatic [Fatal]
  - Metastases to lung [Fatal]
